FAERS Safety Report 7655577-X (Version None)
Quarter: 2011Q3

REPORT INFORMATION
  Report Type: 
  Country: None (occurrence: None)
  Receive Date: 20110804
  Receipt Date: 20110801
  Transmission Date: 20111222
  Serious: Yes (Death, Other)
  Sender: FDA-Public Use
  Company Number: PHHY2011US64130

PATIENT
  Sex: Male

DRUGS (2)
  1. EXJADE [Suspect]
     Indication: SERUM FERRITIN INCREASED
  2. EXJADE [Suspect]
     Indication: ANAEMIA
     Dosage: 1250 MG, QDUD
     Route: 048

REACTIONS (5)
  - DEATH [None]
  - C-REACTIVE PROTEIN INCREASED [None]
  - INTERVERTEBRAL DISC PROTRUSION [None]
  - WHITE BLOOD CELL COUNT DECREASED [None]
  - BACK PAIN [None]
